FAERS Safety Report 21272762 (Version 1)
Quarter: 2022Q3

REPORT INFORMATION
  Report Type: Spontaneous
  Country: CN (occurrence: CN)
  Receive Date: 20220831
  Receipt Date: 20220831
  Transmission Date: 20221027
  Serious: Yes (Other)
  Sender: FDA-Public Use
  Company Number: CN-CHEPLA-2022007277

PATIENT
  Age: 29 Year
  Sex: Female

DRUGS (2)
  1. GANCICLOVIR [Suspect]
     Active Substance: GANCICLOVIR
     Dosage: 6 INTRAOCULAR INJECTIONS
     Route: 031
  2. FOSCARNET [Suspect]
     Active Substance: FOSCARNET
     Dosage: 2 INTRAOCULAR INJECTIONS
     Route: 031

REACTIONS (2)
  - Product use issue [Recovered/Resolved]
  - Rhegmatogenous retinal detachment [Unknown]
